FAERS Safety Report 7625955-3 (Version None)
Quarter: 2011Q3

REPORT INFORMATION
  Report Type: 
  Country: None (occurrence: None)
  Receive Date: 20110721
  Receipt Date: 20110721
  Transmission Date: 20111222
  Serious: Yes (Other)
  Sender: FDA-Public Use
  Company Number: None

PATIENT
  Age: 52 Year
  Sex: Female
  Weight: 56.699 kg

DRUGS (3)
  1. BENZONATATE [Suspect]
     Indication: COUGH
     Dosage: 1 CAPSULE
     Route: 048
     Dates: start: 20110705, end: 20110705
  2. BENZONATATE [Suspect]
     Indication: BRONCHITIS
     Dosage: 1 CAPSULE
     Route: 048
     Dates: start: 20110705, end: 20110705
  3. AMOXICILLIN AND CLAVULANATE POTASSIUM [Interacting]

REACTIONS (7)
  - NAUSEA [None]
  - WEIGHT DECREASED [None]
  - CONFUSIONAL STATE [None]
  - CHEST PAIN [None]
  - EATING DISORDER [None]
  - DIZZINESS [None]
  - RETCHING [None]
